FAERS Safety Report 8823996 (Version 1)
Quarter: 2012Q4

REPORT INFORMATION
  Report Type: 
  Country: CA (occurrence: CA)
  Receive Date: 20121003
  Receipt Date: 20121003
  Transmission Date: 20130627
  Serious: No
  Sender: FDA-Public Use
  Company Number: CA-009507513-1209CAN011994

PATIENT
  Age: 63 Year
  Sex: Male

DRUGS (2)
  1. SAPHRIS [Suspect]
     Indication: SCHIZOPHRENIA
     Dosage: 10 mg, UNK
     Route: 060
  2. SAPHRIS [Suspect]
     Indication: BIPOLAR I DISORDER

REACTIONS (1)
  - Oedema [Recovered/Resolved]
